FAERS Safety Report 10243137 (Version 4)
Quarter: 2014Q3

REPORT INFORMATION
  Report Type: Spontaneous
  Country: US (occurrence: US)
  Receive Date: 20140618
  Receipt Date: 20140805
  Transmission Date: 20150326
  Serious: Yes (Other)
  Sender: FDA-Public Use
  Company Number: US-AMGEN-USASP2014031788

PATIENT
  Age: 18 Year
  Sex: Female

DRUGS (1)
  1. ENBREL [Suspect]
     Active Substance: ETANERCEPT
     Indication: JUVENILE IDIOPATHIC ARTHRITIS
     Dosage: 50 MG, QWK
     Route: 065
     Dates: start: 20140301, end: 20140612

REACTIONS (9)
  - Pain [Not Recovered/Not Resolved]
  - Endometriosis [Recovered/Resolved]
  - Drug interaction [Recovered/Resolved]
  - Pruritus [Not Recovered/Not Resolved]
  - Cyst rupture [Recovered/Resolved]
  - Metrorrhagia [Recovered/Resolved]
  - Butterfly rash [Not Recovered/Not Resolved]
  - Skin lesion [Not Recovered/Not Resolved]
  - Herpes zoster [Recovered/Resolved]

NARRATIVE: CASE EVENT DATE: 2014
